FAERS Safety Report 8323118-X (Version None)
Quarter: 2012Q2

REPORT INFORMATION
  Report Type: 
  Country: None (occurrence: None)
  Receive Date: 20120430
  Receipt Date: 20120425
  Transmission Date: 20120825
  Serious: Yes (Death, Hospitalization)
  Sender: FDA-Public Use
  Company Number: PHHY2012AR035868

PATIENT
  Sex: Male

DRUGS (2)
  1. EXELON [Suspect]
     Indication: AMNESIA
     Dosage: 4.6 MG, DAILY (PATCH 5)
     Route: 062
     Dates: start: 20111101, end: 20120310
  2. EXELON [Suspect]
     Dosage: 4.6 MG, DAILY (PATCH 5)
     Route: 062
     Dates: start: 20120329

REACTIONS (2)
  - CARDIOMYOPATHY [None]
  - CARDIAC FAILURE [None]
